FAERS Safety Report 23902637 (Version 1)
Quarter: 2024Q2

REPORT INFORMATION
  Report Type: Spontaneous
  Country: AT (occurrence: AT)
  Receive Date: 20240527
  Receipt Date: 20240527
  Transmission Date: 20240716
  Serious: Yes (Other)
  Sender: FDA-Public Use
  Company Number: AT-STRIDES ARCOLAB LIMITED-2024SP006044

PATIENT
  Age: 43 Year
  Sex: Male

DRUGS (13)
  1. METHOTREXATE [Suspect]
     Active Substance: METHOTREXATE
     Indication: Mucous membrane pemphigoid
     Dosage: 30 MG/L, ONCE A WEEK
     Route: 065
  2. METHOTREXATE [Suspect]
     Active Substance: METHOTREXATE
     Dosage: 30 MILLIGRAM, ONCE A WEEK
     Route: 065
  3. METHOTREXATE [Suspect]
     Active Substance: METHOTREXATE
     Dosage: UNK, ONCE A WEEK UPTO 25MG
     Route: 065
  4. METHOTREXATE [Suspect]
     Active Substance: METHOTREXATE
     Dosage: 25 MILLIGRAM, ONCE A WEEK
     Route: 065
     Dates: start: 2017
  5. MYCOPHENOLATE MOFETIL [Suspect]
     Active Substance: MYCOPHENOLATE MOFETIL
     Indication: Mucous membrane pemphigoid
     Dosage: 3 GRAM, QD
     Route: 065
  6. PREDNISOLONE [Suspect]
     Active Substance: PREDNISOLONE
     Indication: Mucous membrane pemphigoid
     Dosage: UNK, QD
     Route: 065
  7. PREDNISOLONE [Suspect]
     Active Substance: PREDNISOLONE
     Dosage: 6 MILLIGRAM, QD
     Route: 065
     Dates: start: 2017
  8. CYCLOPHOSPHAMIDE [Suspect]
     Active Substance: CYCLOPHOSPHAMIDE
     Indication: Mucous membrane pemphigoid
     Dosage: 1 GRAM, ONCE A MONTH FOR 1 YEAR
     Route: 065
  9. RITUXIMAB [Suspect]
     Active Substance: RITUXIMAB
     Indication: Mucous membrane pemphigoid
     Dosage: 1 GRAM
     Route: 065
  10. IMMUNE GLOBULIN NOS [Suspect]
     Active Substance: IMMUNE GLOBULIN NOS
     Indication: Mucous membrane pemphigoid
     Dosage: UNK
     Route: 042
  11. BARICITINIB [Suspect]
     Active Substance: BARICITINIB
     Indication: Mucous membrane pemphigoid
     Dosage: 4 MILLIGRAM, QD
     Route: 065
     Dates: start: 2017
  12. BARICITINIB [Suspect]
     Active Substance: BARICITINIB
     Dosage: UNK, QD
     Route: 065
     Dates: start: 2017
  13. ADALIMUMAB [Suspect]
     Active Substance: ADALIMUMAB\ISOPROPYL ALCOHOL
     Indication: Mucous membrane pemphigoid
     Dosage: UNK
     Route: 065

REACTIONS (6)
  - Granulocytopenia [Unknown]
  - Therapy partial responder [Unknown]
  - Condition aggravated [Unknown]
  - Drug ineffective [Unknown]
  - Neutropenia [Unknown]
  - Off label use [Unknown]

NARRATIVE: CASE EVENT DATE: 20170101
